FAERS Safety Report 18721405 (Version 1)
Quarter: 2021Q1

REPORT INFORMATION
  Report Type: Report from Study
  Country: US (occurrence: US)
  Receive Date: 20210109
  Receipt Date: 20210109
  Transmission Date: 20210419
  Serious: No
  Sender: FDA-Public Use
  Company Number: NVSC2021US004146

PATIENT
  Sex: Female

DRUGS (3)
  1. FIBATOR [Suspect]
     Active Substance: ATORVASTATIN\FENOFIBRATE
     Indication: PRODUCT USED FOR UNKNOWN INDICATION
     Dosage: UNK UNK, UNKNOWN
     Route: 065
  2. ENTRESTO [Suspect]
     Active Substance: SACUBITRIL\VALSARTAN
     Indication: CARDIAC FAILURE
     Dosage: 100 MG, BID (49/51 MG)
     Route: 048
  3. FIBATOR [Suspect]
     Active Substance: ATORVASTATIN\FENOFIBRATE
     Dosage: UNK UNK, UNKNOWN (DOSE INCREASED)
     Route: 065

REACTIONS (5)
  - Poor quality sleep [Unknown]
  - Decreased appetite [Unknown]
  - Drug ineffective [Unknown]
  - Malaise [Unknown]
  - Blood glucose decreased [Unknown]
